FAERS Safety Report 15483972 (Version 1)
Quarter: 2018Q4

REPORT INFORMATION
  Report Type: Spontaneous
  Country: US (occurrence: US)
  Receive Date: 20181010
  Receipt Date: 20181010
  Transmission Date: 20190205
  Serious: Yes (Other)
  Sender: FDA-Public Use
  Company Number: US-BAYER-2018-189026

PATIENT
  Age: 21 Year
  Sex: Female

DRUGS (1)
  1. KYLEENA [Suspect]
     Active Substance: LEVONORGESTREL
     Indication: CONTRACEPTION
     Dosage: 19.5 MG, UNK
     Route: 015
     Dates: start: 20180322, end: 20180818

REACTIONS (2)
  - Device dislocation [None]
  - Pain [None]

NARRATIVE: CASE EVENT DATE: 20180817
